FAERS Safety Report 15676453 (Version 1)
Quarter: 2018Q4

REPORT INFORMATION
  Report Type: Report from Study
  Country: DE (occurrence: DE)
  Receive Date: 20181130
  Receipt Date: 20181130
  Transmission Date: 20190205
  Serious: Yes (Life-Threatening, Hospitalization)
  Sender: FDA-Public Use
  Company Number: DE-SA-2018SA040799

PATIENT
  Age: 49 Year
  Sex: Female
  Weight: 55 kg

DRUGS (24)
  1. URBASON [METHYLPREDNISOLONE] [Concomitant]
     Active Substance: METHYLPREDNISOLONE
     Dosage: 250 MG
     Route: 042
     Dates: start: 20170109, end: 20170110
  2. SODIUM CHLORIDE. [Concomitant]
     Active Substance: SODIUM CHLORIDE
     Dosage: 0 MG
     Route: 042
     Dates: start: 20170109, end: 20170109
  3. NOVALGIN [CAFFEINE;PARACETAMOL;PROPYPHENAZONE] [Concomitant]
     Dosage: 1000 MG, QD
     Route: 042
     Dates: start: 20180110, end: 20180110
  4. RANITIDINE. [Concomitant]
     Active Substance: RANITIDINE
     Indication: PREMEDICATION
     Dosage: 150 MG
     Route: 048
     Dates: start: 20170108, end: 20170108
  5. SODIUM CHLORIDE. [Concomitant]
     Active Substance: SODIUM CHLORIDE
     Dosage: 0 MG
     Route: 042
     Dates: start: 20170110, end: 20170110
  6. FLUOXETINE [Concomitant]
     Active Substance: FLUOXETINE HYDROCHLORIDE
     Dosage: 20 MG
     Route: 048
     Dates: start: 20071218
  7. IBUPROFEN. [Concomitant]
     Active Substance: IBUPROFEN
     Dosage: 600 MG,UNK
     Route: 048
     Dates: start: 20170109, end: 20170109
  8. ALEMTUZUMAB [Suspect]
     Active Substance: ALEMTUZUMAB
     Dosage: 12 MG,QD
     Route: 041
     Dates: start: 20170109, end: 20170111
  9. SODIUM CHLORIDE. [Concomitant]
     Active Substance: SODIUM CHLORIDE
     Dosage: 0 MG
     Route: 042
     Dates: start: 20170109, end: 20170109
  10. NOVALGIN [CAFFEINE;PARACETAMOL;PROPYPHENAZONE] [Concomitant]
     Dosage: 1000 MG
     Route: 042
     Dates: start: 20170111, end: 20170111
  11. MOXIFLOXACIN. [Concomitant]
     Active Substance: MOXIFLOXACIN
     Dosage: 400 MG,UNK
     Route: 048
     Dates: start: 20170201, end: 20170212
  12. ACICLOVIR [Concomitant]
     Active Substance: ACYCLOVIR
     Indication: PROPHYLAXIS
     Dosage: 200 MG
     Route: 048
     Dates: start: 20170108, end: 20170108
  13. ALEMTUZUMAB [Suspect]
     Active Substance: ALEMTUZUMAB
     Dosage: UNK UNK,UNK
     Route: 041
     Dates: start: 20150323, end: 20150325
  14. URBASON [METHYLPREDNISOLONE] [Concomitant]
     Active Substance: METHYLPREDNISOLONE
     Indication: PREMEDICATION
     Dosage: 120 MG
     Route: 048
     Dates: start: 20170108, end: 20170108
  15. ORTOTON [METHOCARBAMOL] [Concomitant]
     Dosage: 750 MG
     Route: 048
     Dates: start: 20170418
  16. ALEMTUZUMAB [Suspect]
     Active Substance: ALEMTUZUMAB
     Indication: RELAPSING-REMITTING MULTIPLE SCLEROSIS
     Dosage: UNK UNK,UNK
     Route: 041
     Dates: start: 20140113, end: 20140117
  17. URBASON [METHYLPREDNISOLONE] [Concomitant]
     Active Substance: METHYLPREDNISOLONE
     Dosage: 250 MG, QD
     Route: 042
     Dates: start: 20170111, end: 20170111
  18. NOVALGIN [CAFFEINE;PARACETAMOL;PROPYPHENAZONE] [Concomitant]
     Indication: PREMEDICATION
     Dosage: 1000 MG
     Route: 042
     Dates: start: 20170109, end: 20170109
  19. CEFASEL [Concomitant]
     Indication: PROPHYLAXIS
     Dosage: 100 DF,UNK
     Route: 048
     Dates: start: 20170112, end: 20170620
  20. AZITHROMYCIN ANHYDROUS. [Concomitant]
     Active Substance: AZITHROMYCIN ANHYDROUS
     Dosage: 500 MG,UNK
     Route: 048
     Dates: start: 20170127, end: 20170201
  21. COTRIM FORTE [Concomitant]
     Active Substance: SULFAMETHOXAZOLE\TRIMETHOPRIM
     Dosage: 960 MG,UNK
     Route: 048
     Dates: start: 20170201, end: 20170211
  22. SODIUM CHLORIDE. [Concomitant]
     Active Substance: SODIUM CHLORIDE
     Dosage: 0 MG
     Route: 042
     Dates: start: 20170111, end: 20170111
  23. NEUPRO [Concomitant]
     Active Substance: ROTIGOTINE
     Dosage: 2 MG,QD
     Route: 050
     Dates: start: 20140211
  24. ACICLOVIR [Concomitant]
     Active Substance: ACYCLOVIR
     Dosage: 400 MG
     Route: 048
     Dates: start: 20170109, end: 20170109

REACTIONS (1)
  - Thyrotoxic crisis [Recovered/Resolved]

NARRATIVE: CASE EVENT DATE: 20180212
